FAERS Safety Report 25406712 (Version 1)
Quarter: 2025Q2

REPORT INFORMATION
  Report Type: Spontaneous
  Country: AU (occurrence: AU)
  Receive Date: 20250606
  Receipt Date: 20250606
  Transmission Date: 20250717
  Serious: Yes (Other)
  Sender: SERVIER
  Company Number: AU-SERVIER-S25005990

PATIENT

DRUGS (4)
  1. VORASIDENIB [Suspect]
     Active Substance: VORASIDENIB
     Indication: Malignant oligodendroglioma
     Dosage: 40 MG, QD
     Route: 048
     Dates: start: 20250102, end: 20250124
  2. VORASIDENIB [Suspect]
     Active Substance: VORASIDENIB
     Dosage: 40 MG, QD
     Route: 048
     Dates: start: 20250130, end: 20250428
  3. VORASIDENIB [Suspect]
     Active Substance: VORASIDENIB
     Dosage: 20 MG, QD
     Route: 048
     Dates: start: 20250512
  4. KEPPRA [Concomitant]
     Active Substance: LEVETIRACETAM
     Indication: Seizure prophylaxis
     Dosage: 500 MG, BID
     Route: 048
     Dates: start: 202101

REACTIONS (3)
  - Hepatotoxicity [Recovered/Resolved]
  - Hepatotoxicity [Recovering/Resolving]
  - Liver function test abnormal [Unknown]

NARRATIVE: CASE EVENT DATE: 20250122
